APPROVED DRUG PRODUCT: HYDRALAZINE, HYDROCHLOROTHIAZIDE W/ RESERPINE
Active Ingredient: HYDRALAZINE HYDROCHLORIDE; HYDROCHLOROTHIAZIDE; RESERPINE
Strength: 25MG;15MG;0.1MG
Dosage Form/Route: TABLET;ORAL
Application: A085771 | Product #001
Applicant: WATSON LABORATORIES INC
Approved: Approved Prior to Jan 1, 1982 | RLD: No | RS: No | Type: DISCN